FAERS Safety Report 12840307 (Version 8)
Quarter: 2017Q2

REPORT INFORMATION
  Report Type: Report from Study
  Country: CO (occurrence: CO)
  Receive Date: 20161012
  Receipt Date: 20170606
  Transmission Date: 20170830
  Serious: Yes (Hospitalization, Other)
  Sender: FDA-Public Use
  Company Number: CO-SA-2016SA141381

PATIENT
  Age: 35 Year
  Sex: Female
  Weight: 60 kg

DRUGS (2)
  1. LEMTRADA [Suspect]
     Active Substance: ALEMTUZUMAB
     Indication: MULTIPLE SCLEROSIS
     Route: 041
     Dates: start: 20160422, end: 20160426
  2. LEMTRADA [Suspect]
     Active Substance: ALEMTUZUMAB
     Indication: MULTIPLE SCLEROSIS
     Route: 041
     Dates: start: 20170510, end: 20170512

REACTIONS (16)
  - Malaise [Unknown]
  - Eosinophil percentage increased [Not Recovered/Not Resolved]
  - Hyperoxaluria [Recovered/Resolved]
  - Urinary sediment present [Unknown]
  - Leukocyturia [Unknown]
  - Bacteriuria [Not Recovered/Not Resolved]
  - Hypoaesthesia [Unknown]
  - Eosinophilia [Recovered/Resolved]
  - Granulocyte percentage [Unknown]
  - Fatigue [Unknown]
  - Erythropenia [Recovered/Resolved]
  - Leukopenia [Recovered/Resolved]
  - White blood cell count decreased [Not Recovered/Not Resolved]
  - Blood thyroid stimulating hormone increased [Not Recovered/Not Resolved]
  - Lymphopenia [Recovered/Resolved]
  - Blood creatinine increased [Not Recovered/Not Resolved]

NARRATIVE: CASE EVENT DATE: 2016
